APPROVED DRUG PRODUCT: RENOQUID
Active Ingredient: SULFACYTINE
Strength: 250MG
Dosage Form/Route: TABLET;ORAL
Application: N017569 | Product #001
Applicant: GLENWOOD INC
Approved: Approved Prior to Jan 1, 1982 | RLD: No | RS: No | Type: DISCN